FAERS Safety Report 17418501 (Version 1)
Quarter: 2020Q1

REPORT INFORMATION
  Report Type: Spontaneous
  Country: US (occurrence: US)
  Receive Date: 20200214
  Receipt Date: 20200214
  Transmission Date: 20200409
  Serious: No
  Sender: FDA-Public Use
  Company Number: US-UNITED THERAPEUTICS-UNT-2020-002522

PATIENT
  Sex: Male

DRUGS (1)
  1. REMODULIN [Suspect]
     Active Substance: TREPROSTINIL
     Indication: PULMONARY ARTERIAL HYPERTENSION
     Dosage: 0.0673 ?G/KG, CONTINUING
     Route: 058
     Dates: start: 20190320

REACTIONS (5)
  - Infusion site nodule [Unknown]
  - Infusion site rash [Unknown]
  - Purulent discharge [Unknown]
  - Infusion site discharge [Unknown]
  - Infusion site pain [Unknown]
